FAERS Safety Report 9796054 (Version 2)
Quarter: 2014Q1

REPORT INFORMATION
  Report Type: Spontaneous
  Country: FR (occurrence: FR)
  Receive Date: 20140103
  Receipt Date: 20140218
  Transmission Date: 20141002
  Serious: Yes (Life-Threatening)
  Sender: FDA-Public Use
  Company Number: FR-PFIZER INC-2013374285

PATIENT
  Age: 51 Year
  Sex: Male

DRUGS (3)
  1. FLUOROURACILE PFIZER [Suspect]
     Indication: COLON CANCER
     Dosage: 2400 MG/M2, CYCLIC (FIRST COURSE)
     Route: 041
     Dates: start: 20131122, end: 20131123
  2. ELOXATINE [Concomitant]
     Indication: COLON CANCER
     Dosage: 85 MG/M2, CYCLIC (FIRST COURSE)
     Route: 042
     Dates: start: 20131122, end: 20131122
  3. FOLINIC ACID [Concomitant]
     Indication: COLON CANCER
     Dosage: UNK,

REACTIONS (2)
  - Cardiogenic shock [Recovered/Resolved]
  - Myocarditis [Recovered/Resolved]
